FAERS Safety Report 9652140 (Version 1)
Quarter: 2013Q4

REPORT INFORMATION
  Report Type: Spontaneous
  Country: ES (occurrence: ES)
  Receive Date: 20131029
  Receipt Date: 20131029
  Transmission Date: 20140711
  Serious: Yes (Other)
  Sender: FDA-Public Use
  Company Number: ES-ROXANE LABORATORIES, INC.-2013-RO-01723RO

PATIENT
  Age: 65 Year
  Sex: Female

DRUGS (2)
  1. AZATHIOPRINE [Suspect]
     Indication: PEMPHIGOID
     Dosage: 50 MG
  2. PREDNISONE [Suspect]
     Indication: PEMPHIGOID
     Dosage: 60 MG

REACTIONS (1)
  - Erythema nodosum [Recovered/Resolved]
